FAERS Safety Report 5752329-2 (Version None)
Quarter: 2008Q2

REPORT INFORMATION
  Report Type: 
  Country: None (occurrence: None)
  Receive Date: 20080529
  Receipt Date: 20080523
  Transmission Date: 20081010
  Serious: Yes (Other)
  Sender: FDA-Public Use
  Company Number: US-ASTRAZENECA-2008UW02205

PATIENT
  Age: 37 Year
  Sex: Female
  Weight: 100 kg

DRUGS (6)
  1. SEROQUEL [Suspect]
     Indication: DEPRESSION
     Dosage: VARIOUS (INCLUDING BUT NOT LIMITED TO 50 MG)
     Route: 048
     Dates: start: 20040101, end: 20070101
  2. SEROQUEL [Suspect]
     Indication: ANXIETY
     Dosage: VARIOUS (INCLUDING BUT NOT LIMITED TO 50 MG)
     Route: 048
     Dates: start: 20040101, end: 20070101
  3. SEROQUEL [Suspect]
     Indication: POST-TRAUMATIC STRESS DISORDER
     Dosage: VARIOUS (INCLUDING BUT NOT LIMITED TO 50 MG)
     Route: 048
     Dates: start: 20040101, end: 20070101
  4. EFFEXOR [Concomitant]
     Dates: start: 20040101
  5. PAXIL [Concomitant]
     Dates: start: 20040101
  6. TNAZOSIN [Concomitant]
     Dates: start: 20040101

REACTIONS (4)
  - ACCIDENT [None]
  - AMNESIA [None]
  - COMA [None]
  - DIABETES MELLITUS [None]
